FAERS Safety Report 4542386-3 (Version None)
Quarter: 2004Q4

REPORT INFORMATION
  Report Type: 
  Country: None (occurrence: None)
  Receive Date: 20041229
  Receipt Date: 20041216
  Transmission Date: 20050328
  Serious: Yes (Death)
  Sender: FDA-Public Use
  Company Number: 2004113049

PATIENT
  Sex: Female

DRUGS (1)
  1. POLYSPORIN OINTMENT (POLYMYXIN B SULFATE, BACITRACIN ZINC) [Suspect]
     Indication: NASAL DISCOMFORT
     Dosage: Q-TIPPED-SIZED AMOUNT ONCE, NASAL
     Route: 045
     Dates: start: 20041122, end: 20041122

REACTIONS (1)
  - DEATH [None]
